FAERS Safety Report 8452475-9 (Version None)
Quarter: 2012Q2

REPORT INFORMATION
  Report Type: 
  Country: None (occurrence: None)
  Receive Date: 20120620
  Receipt Date: 20120412
  Transmission Date: 20120825
  Serious: No
  Sender: FDA-Public Use
  Company Number: US-VERTEX PHARMACEUTICALS INC.-AE-2012-005262

PATIENT
  Sex: Male
  Weight: 79.45 kg

DRUGS (5)
  1. NEXIUM [Concomitant]
     Indication: GASTROOESOPHAGEAL REFLUX DISEASE
     Route: 048
  2. INCIVEK [Suspect]
     Indication: HEPATITIS C
     Route: 048
     Dates: start: 20120316
  3. RIBASPHERE [Concomitant]
     Indication: HEPATITIS C
     Dates: start: 20120316
  4. LOPID [Concomitant]
     Route: 048
  5. PEGASYS [Concomitant]
     Indication: HEPATITIS C
     Route: 058
     Dates: start: 20120316

REACTIONS (8)
  - FATIGUE [None]
  - PAIN IN EXTREMITY [None]
  - DYSPNOEA EXERTIONAL [None]
  - HEADACHE [None]
  - NAUSEA [None]
  - RESTLESS LEGS SYNDROME [None]
  - ANORECTAL DISCOMFORT [None]
  - ANAL PRURITUS [None]
